FAERS Safety Report 9976395 (Version 2)
Quarter: 2014Q1

REPORT INFORMATION
  Report Type: Report from Study
  Country: US (occurrence: US)
  Receive Date: 20140306
  Receipt Date: 20140306
  Transmission Date: 20141002
  Serious: No
  Sender: FDA-Public Use
  Company Number: US-ABBVIE-13P-163-1165644-00

PATIENT
  Age: 45 Year
  Sex: Male
  Weight: 73.09 kg

DRUGS (5)
  1. HUMIRA [Suspect]
     Indication: ANKYLOSING SPONDYLITIS
     Route: 058
     Dates: start: 20090722, end: 201309
  2. TYLENOL [Concomitant]
     Indication: ANKYLOSING SPONDYLITIS
  3. TYLENOL [Concomitant]
  4. MIRTAZAPINE [Concomitant]
     Indication: PRODUCT USED FOR UNKNOWN INDICATION
  5. MIRTAZAPINE [Concomitant]

REACTIONS (4)
  - Lipoma [Not Recovered/Not Resolved]
  - Lipoma [Not Recovered/Not Resolved]
  - Local swelling [Not Recovered/Not Resolved]
  - Mass [Not Recovered/Not Resolved]
